FAERS Safety Report 9788797 (Version 1)
Quarter: 2013Q4

REPORT INFORMATION
  Report Type: Spontaneous
  Country: US (occurrence: US)
  Receive Date: 20131230
  Receipt Date: 20131230
  Transmission Date: 20140711
  Serious: Yes (Death, Hospitalization)
  Sender: FDA-Public Use
  Company Number: US-ASTRAZENECA-2013SE94097

PATIENT
  Age: 87 Year
  Sex: Female

DRUGS (5)
  1. SEROQUEL [Suspect]
     Route: 048
     Dates: start: 20130805
  2. MORPHINE [Concomitant]
     Indication: DISCOMFORT
     Dates: start: 20130808
  3. ICLUSIG [Concomitant]
     Indication: MYELOID LEUKAEMIA
     Dates: start: 20130403
  4. ICLUSIG [Concomitant]
     Indication: MYELOID LEUKAEMIA
     Dates: start: 20130612
  5. ICLUSIG [Concomitant]
     Indication: MYELOID LEUKAEMIA
     Dates: start: 20130612

REACTIONS (11)
  - Ischaemic stroke [Fatal]
  - Depressed level of consciousness [Unknown]
  - Confusional state [Unknown]
  - Insomnia [Unknown]
  - Agitation [Unknown]
  - Oxygen saturation decreased [Unknown]
  - Speech disorder [Unknown]
  - Cough [Unknown]
  - Dysphagia [Unknown]
  - Blood pressure decreased [Unknown]
  - Somnolence [Unknown]
